FAERS Safety Report 6696325-X (Version None)
Quarter: 2010Q2

REPORT INFORMATION
  Report Type: 
  Country: None (occurrence: None)
  Receive Date: 20100426
  Receipt Date: 20100419
  Transmission Date: 20101027
  Serious: Yes (Other)
  Sender: FDA-Public Use
  Company Number: JP-ABBOTT-10P-087-0639887-00

PATIENT
  Sex: Male

DRUGS (2)
  1. LEUPLIN FOR INJECTION KIT 3.75 [Suspect]
     Indication: PROSTATE CANCER
  2. CASODEX [Concomitant]
     Indication: DRUG USE FOR UNKNOWN INDICATION

REACTIONS (1)
  - THROMBOCYTOPENIA [None]
